FAERS Safety Report 7141105-4 (Version None)
Quarter: 2010Q4

REPORT INFORMATION
  Report Type: 
  Country: None (occurrence: None)
  Receive Date: 20101122
  Receipt Date: 20101104
  Transmission Date: 20110411
  Serious: Yes (Death, Hospitalization)
  Sender: FDA-Public Use
  Company Number: 751710

PATIENT
  Age: 68 Year
  Sex: Male

DRUGS (7)
  1. IRINOTECAN HYDROCHLORIDE [Suspect]
     Indication: COLON CANCER
     Dosage: 88.23 MG MILLIGRAM(S), INTRAVENOUS
     Route: 042
     Dates: start: 20100708, end: 20100909
  2. FLUOROURACIL [Suspect]
     Indication: COLON CANCER
     Dosage: 2507 MG MILLIGRAM(S), INTRAVENOUS
     Route: 042
     Dates: start: 20100708, end: 20100909
  3. ERBITUX [Suspect]
     Indication: COLON CANCER
     Dosage: 417.8 MG MILLIGRAM(S), INTRAVENOUS
     Route: 042
     Dates: start: 20100709, end: 20100902
  4. (LEVOFOLENE) [Concomitant]
  5. DECADRON [Concomitant]
  6. ZOFRAN [Concomitant]
  7. (TRIMETON /00072502/) [Concomitant]

REACTIONS (7)
  - BLOOD LACTATE DEHYDROGENASE INCREASED [None]
  - COLON CANCER [None]
  - DECREASED APPETITE [None]
  - LIVER SCAN ABNORMAL [None]
  - NEOPLASM RECURRENCE [None]
  - PNEUMONIA [None]
  - PYREXIA [None]
